FAERS Safety Report 7350267-5 (Version None)
Quarter: 2011Q1

REPORT INFORMATION
  Report Type: 
  Country: None (occurrence: None)
  Receive Date: 20110314
  Receipt Date: 20110304
  Transmission Date: 20110831
  Serious: Yes (Hospitalization, Other)
  Sender: FDA-Public Use
  Company Number: GB-ELI_LILLY_AND_COMPANY-GB201103002030

PATIENT
  Age: 65 Year
  Sex: Female

DRUGS (1)
  1. CYMBALTA [Suspect]
     Dosage: 30 MG, UNK

REACTIONS (2)
  - DYSPHAGIA [None]
  - HOSPITALISATION [None]
